FAERS Safety Report 9360718 (Version 1)
Quarter: 2013Q2

REPORT INFORMATION
  Report Type: Spontaneous
  Country: IT (occurrence: IT)
  Receive Date: 20130621
  Receipt Date: 20130621
  Transmission Date: 20140414
  Serious: Yes (Other)
  Sender: FDA-Public Use
  Company Number: IT-JNJFOC-20130610435

PATIENT
  Age: 54 Year
  Sex: Female

DRUGS (6)
  1. SIMPONI [Suspect]
     Indication: RHEUMATOID ARTHRITIS
     Route: 058
     Dates: start: 20120516, end: 20130521
  2. PREDNISONE [Concomitant]
     Indication: RHEUMATOID ARTHRITIS
     Route: 065
  3. CARDIRENE [Concomitant]
     Indication: THROMBOSIS PROPHYLAXIS
     Route: 065
  4. BLOPRESS [Concomitant]
     Indication: HYPERTENSION
     Route: 065
  5. ARAVA [Concomitant]
     Indication: RHEUMATOID ARTHRITIS
     Route: 065
  6. FOSAMAX [Concomitant]
     Indication: OSTEOPOROSIS PROPHYLAXIS
     Route: 065

REACTIONS (2)
  - Blood lactate dehydrogenase increased [Unknown]
  - Immunoglobulins abnormal [Unknown]
